FAERS Safety Report 6887188-8 (Version None)
Quarter: 2010Q3

REPORT INFORMATION
  Report Type: 
  Country: None (occurrence: None)
  Receive Date: 20100730
  Receipt Date: 20100719
  Transmission Date: 20110219
  Serious: Yes (Hospitalization, Other)
  Sender: FDA-Public Use
  Company Number: US-PFIZER INC-2010069196

PATIENT
  Sex: Male
  Weight: 59.4 kg

DRUGS (7)
  1. SUTENT [Suspect]
     Indication: METASTATIC RENAL CELL CARCINOMA
     Dosage: 50 MG, 1X/DAY X 28 DAYS EVERY 42 DAYS
     Route: 048
     Dates: start: 20100501
  2. SUTENT [Suspect]
     Indication: RENAL CANCER
     Dosage: 37.5 MG, 1X/DAY
     Dates: start: 20100623
  3. ASPIRIN [Concomitant]
  4. ATENOLOL [Concomitant]
     Indication: HYPERTENSION
     Dosage: UNK
  5. LIPITOR [Concomitant]
     Indication: BLOOD CHOLESTEROL INCREASED
     Dosage: UNK
  6. AMLODIPINE [Concomitant]
     Dosage: 10 MG, DAILY
  7. ISOSORBIDE [Concomitant]
     Dosage: UNK

REACTIONS (17)
  - ASTHENIA [None]
  - BLOOD SODIUM DECREASED [None]
  - CONFUSIONAL STATE [None]
  - COUGH [None]
  - DYSARTHRIA [None]
  - DYSPNOEA [None]
  - ELECTROLYTE IMBALANCE [None]
  - ERUCTATION [None]
  - GENERAL PHYSICAL HEALTH DETERIORATION [None]
  - LOSS OF CONSCIOUSNESS [None]
  - PALMAR-PLANTAR ERYTHRODYSAESTHESIA SYNDROME [None]
  - PLATELET COUNT DECREASED [None]
  - RED BLOOD CELL COUNT DECREASED [None]
  - SWOLLEN TONGUE [None]
  - TONGUE BLISTERING [None]
  - WHEEZING [None]
  - YELLOW SKIN [None]
